FAERS Safety Report 8289962-2 (Version None)
Quarter: 2012Q2

REPORT INFORMATION
  Report Type: 
  Country: None (occurrence: None)
  Receive Date: 20120417
  Receipt Date: 20120410
  Transmission Date: 20120825
  Serious: Yes (Life-Threatening)
  Sender: FDA-Public Use
  Company Number: US-CELGENEUS-163-21880-12041055

PATIENT
  Sex: Female

DRUGS (18)
  1. WELLBUTRIN [Concomitant]
     Route: 065
  2. BUSPAR [Concomitant]
     Route: 065
  3. COSOPT [Concomitant]
     Route: 065
  4. REVLIMID [Suspect]
     Indication: MYELODYSPLASTIC SYNDROME
     Dosage: 10 MILLIGRAM
     Route: 048
     Dates: start: 20071001
  5. NEXIUM [Concomitant]
     Route: 065
  6. CELEXA [Concomitant]
     Route: 065
  7. CALCIUM CARBONATE [Concomitant]
     Route: 065
  8. REVLIMID [Suspect]
     Dosage: 10 MILLIGRAM
     Route: 048
     Dates: start: 20080401
  9. LOVASTATIN [Concomitant]
     Route: 065
  10. GABAPENTIN [Concomitant]
     Route: 065
  11. PYRIDOXINE HCL [Concomitant]
     Route: 065
  12. PIROXICAM [Concomitant]
     Route: 065
  13. LIDODERM [Concomitant]
     Route: 065
  14. ALPHAGAN P [Concomitant]
     Route: 065
  15. MIRALAX [Concomitant]
     Route: 065
  16. GLUCOSAMINE [Concomitant]
     Route: 065
  17. LEVOTHYROXINE SODIUM [Concomitant]
     Route: 065
  18. CALCITRIOL [Concomitant]
     Route: 065

REACTIONS (1)
  - DISEASE PROGRESSION [None]
